FAERS Safety Report 25999108 (Version 1)
Quarter: 2025Q4

REPORT INFORMATION
  Report Type: Spontaneous
  Country: US (occurrence: US)
  Receive Date: 20251105
  Receipt Date: 20251105
  Transmission Date: 20260118
  Serious: Yes (Other)
  Sender: BIOCON
  Company Number: US-BIOCON BIOLOGICS LIMITED-BBL2025005973

PATIENT

DRUGS (27)
  1. TRASTUZUMAB [Suspect]
     Active Substance: TRASTUZUMAB
     Indication: Invasive ductal breast carcinoma
     Dosage: UNK UNK, Q3W  C1 OF TCHP COMPLETED
     Route: 065
     Dates: end: 20201104
  2. TRASTUZUMAB [Suspect]
     Active Substance: TRASTUZUMAB
     Dosage: UNK UNK, Q3W, C2 COMPLETED
     Route: 065
     Dates: end: 20201125
  3. TRASTUZUMAB [Suspect]
     Active Substance: TRASTUZUMAB
     Dosage: UNK UNK, Q3W C3 COMPLETED
     Route: 065
     Dates: end: 20201216
  4. TRASTUZUMAB [Suspect]
     Active Substance: TRASTUZUMAB
     Dosage: UNK UNK, Q3W C4 COMPLETED
     Route: 065
     Dates: end: 20210318
  5. TRASTUZUMAB [Suspect]
     Active Substance: TRASTUZUMAB
     Dosage: UNK UNK, Q3W, C5 COMPLETED
     Route: 065
     Dates: end: 20210408
  6. TRASTUZUMAB [Suspect]
     Active Substance: TRASTUZUMAB
     Dosage: UNK UNK,  C6 COMPLETED Q3W
     Route: 065
     Dates: end: 20210429
  7. TRASTUZUMAB [Suspect]
     Active Substance: TRASTUZUMAB
     Dosage: UNK
     Route: 065
     Dates: start: 20210712, end: 20211115
  8. DOCETAXEL [Suspect]
     Active Substance: DOCETAXEL
     Indication: Invasive ductal breast carcinoma
     Dosage: UNK UNK, Q3W, C1 OF TCHP COMPLETED
     Route: 065
     Dates: end: 20201104
  9. DOCETAXEL [Suspect]
     Active Substance: DOCETAXEL
     Dosage: UNK UNK, Q3W C2 COMPLETED
     Route: 065
     Dates: end: 20201125
  10. DOCETAXEL [Suspect]
     Active Substance: DOCETAXEL
     Dosage: UNK UNK, Q3W C3 COMPLETED
     Route: 065
     Dates: start: 20201216, end: 20201216
  11. DOCETAXEL [Suspect]
     Active Substance: DOCETAXEL
     Dosage: UNK UNK, Q3W C4 COMPLETED
     Route: 065
     Dates: end: 20210318
  12. DOCETAXEL [Suspect]
     Active Substance: DOCETAXEL
     Dosage: UNK UNK, Q3W C5 COMPLETED
     Route: 065
     Dates: end: 20210408
  13. DOCETAXEL [Suspect]
     Active Substance: DOCETAXEL
     Dosage: UNK UNK, Q3W C6 COMPLETED
     Route: 065
     Dates: end: 20210429
  14. CARBOPLATIN [Suspect]
     Active Substance: CARBOPLATIN
     Indication: Invasive ductal breast carcinoma
     Dosage: UNK UNK, Q3W C1 OF TCHP COMPLETED
     Route: 065
     Dates: end: 20201104
  15. CARBOPLATIN [Suspect]
     Active Substance: CARBOPLATIN
     Dosage: UNK UNK, Q3W C2 COMPLETED
     Route: 065
     Dates: end: 20201125
  16. CARBOPLATIN [Suspect]
     Active Substance: CARBOPLATIN
     Dosage: UNK UNK, Q3W C3 COMPLETED
     Route: 065
     Dates: end: 20201216
  17. CARBOPLATIN [Suspect]
     Active Substance: CARBOPLATIN
     Dosage: UNK UNK, Q3W C4 COMPLETED
     Route: 065
     Dates: end: 20210318
  18. CARBOPLATIN [Suspect]
     Active Substance: CARBOPLATIN
     Dosage: UNK UNK, Q3W C5 COMPLETED
     Route: 065
     Dates: end: 20210408
  19. CARBOPLATIN [Suspect]
     Active Substance: CARBOPLATIN
     Dosage: UNK UNK, Q3W C6 COMPLETED
     Route: 065
     Dates: end: 20210429
  20. PERTUZUMAB [Suspect]
     Active Substance: PERTUZUMAB
     Indication: Invasive ductal breast carcinoma
     Dosage: UNK UNK, Q3W, C1 OF TCHP COMPLETED
     Route: 065
     Dates: end: 20201104
  21. PERTUZUMAB [Suspect]
     Active Substance: PERTUZUMAB
     Dosage: UNK UNK, Q3W C2 COMPLETED
     Route: 065
     Dates: end: 20201125
  22. PERTUZUMAB [Suspect]
     Active Substance: PERTUZUMAB
     Dosage: UNK UNK, Q3W C3 COMPLETED
     Route: 065
     Dates: end: 20201216
  23. PERTUZUMAB [Suspect]
     Active Substance: PERTUZUMAB
     Dosage: UNK UNK, Q3W C4 COMPLETED
     Route: 065
     Dates: end: 20210318
  24. PERTUZUMAB [Suspect]
     Active Substance: PERTUZUMAB
     Dosage: UNK UNK, Q3W C5 COMPLETED
     Route: 065
     Dates: end: 20210408
  25. PERTUZUMAB [Suspect]
     Active Substance: PERTUZUMAB
     Dosage: UNK UNK, Q3W, C6 COMPLETED
     Route: 065
     Dates: end: 20210429
  26. GOSERELIN [Suspect]
     Active Substance: GOSERELIN
     Indication: Invasive ductal breast carcinoma
     Dosage: UNK
     Route: 065
     Dates: start: 20210913, end: 20211115
  27. TAMOXIFEN [Suspect]
     Active Substance: TAMOXIFEN
     Indication: Invasive ductal breast carcinoma
     Dosage: UNK
     Route: 065
     Dates: start: 20210923, end: 20211115

REACTIONS (1)
  - Suicidal ideation [Unknown]
